FAERS Safety Report 24307259 (Version 1)
Quarter: 2024Q3

REPORT INFORMATION
  Report Type: Spontaneous
  Country: US (occurrence: None)
  Receive Date: 20240910
  Receipt Date: 20240910
  Transmission Date: 20241016
  Serious: Yes (Other)
  Sender: Public
  Company Number: None

PATIENT
  Age: 8 Year
  Sex: Female
  Weight: 33.75 kg

DRUGS (1)
  1. MONTELUKAST SODIUM [Suspect]
     Active Substance: MONTELUKAST\MONTELUKAST SODIUM
     Indication: Seasonal allergy
     Dosage: OTHER QUANTITY : 1 TABLET(S);?FREQUENCY : AT BEDTIME;?
     Route: 048
     Dates: start: 20240202, end: 20240819

REACTIONS (11)
  - Anxiety [None]
  - Agitation [None]
  - Nightmare [None]
  - Separation anxiety disorder [None]
  - Irritability [None]
  - Panic attack [None]
  - Screaming [None]
  - Hyperventilation [None]
  - Fear [None]
  - Abulia [None]
  - Suicidal ideation [None]

NARRATIVE: CASE EVENT DATE: 20240601
